FAERS Safety Report 4767362-7 (Version None)
Quarter: 2005Q3

REPORT INFORMATION
  Report Type: 
  Country: None (occurrence: None)
  Receive Date: 20050913
  Receipt Date: 20050822
  Transmission Date: 20060218
  Serious: Yes (Hospitalization)
  Sender: FDA-Public Use
  Company Number: DE-ROCHE-415035

PATIENT

DRUGS (3)
  1. ROCALTROL [Suspect]
     Indication: THYROIDECTOMY
  2. CALCIUM GLUCONATE [Concomitant]
  3. L-THYROXIN [Concomitant]

REACTIONS (4)
  - DRUG EXPOSURE DURING PREGNANCY [None]
  - NORMAL NEWBORN [None]
  - RESPIRATORY DISORDER [None]
  - VISUAL DISTURBANCE [None]
